FAERS Safety Report 8366256-8 (Version None)
Quarter: 2012Q2

REPORT INFORMATION
  Report Type: 
  Country: None (occurrence: None)
  Receive Date: 20120517
  Receipt Date: 20120510
  Transmission Date: 20120825
  Serious: Yes (Other)
  Sender: FDA-Public Use
  Company Number: PHHY2012US040893

PATIENT
  Age: 42 Year
  Sex: Female

DRUGS (6)
  1. DEFERASIROX [Suspect]
     Indication: SERUM FERRITIN INCREASED
     Dosage: UNK UKN, UNK
  2. FLUDARABINE PHOSPHATE [Concomitant]
  3. DAUNORUBICIN HYDROCHLORIDE [Concomitant]
  4. CYTARABINE [Concomitant]
  5. ELTROMBOPAG [Concomitant]
     Dosage: 50 MG/DAY
  6. FILGRASTIM [Concomitant]

REACTIONS (1)
  - VAGINAL HAEMORRHAGE [None]
